FAERS Safety Report 11915286 (Version 2)
Quarter: 2016Q1

REPORT INFORMATION
  Report Type: Spontaneous
  Country: IN (occurrence: IN)
  Receive Date: 20160114
  Receipt Date: 20160212
  Transmission Date: 20160526
  Serious: Yes (Hospitalization)
  Sender: FDA-Public Use
  Company Number: IN-009507513-1601IND004111

PATIENT
  Age: 65 Year
  Sex: Female
  Weight: 73 kg

DRUGS (1)
  1. BETAMETHASONE. [Suspect]
     Active Substance: BETAMETHASONE
     Indication: DYSPNOEA
     Dosage: 0.5 MG 2-3 TIMES A DAY (AS SELF MEDICATION)
     Route: 048

REACTIONS (6)
  - Hypothyroidism [Recovering/Resolving]
  - Hypothalamic pituitary adrenal axis suppression [Recovering/Resolving]
  - Osteopenia [Recovering/Resolving]
  - Hypertension [Recovering/Resolving]
  - Lymphopenia [Recovering/Resolving]
  - Cushing^s syndrome [Recovering/Resolving]
